FAERS Safety Report 16260517 (Version 1)
Quarter: 2019Q2

REPORT INFORMATION
  Report Type: Report from Study
  Country: ES (occurrence: ES)
  Receive Date: 20190501
  Receipt Date: 20190501
  Transmission Date: 20190711
  Serious: Yes (Life-Threatening, Hospitalization)
  Sender: FDA-Public Use
  Company Number: ES-TEVA-2019-ES-1045026

PATIENT
  Age: 35 Year
  Sex: Male

DRUGS (6)
  1. CLORAZEPATO DIPOTASIO (648DK) [Concomitant]
     Indication: WITHDRAWAL SYNDROME
     Route: 048
     Dates: start: 20181224, end: 20181224
  2. LEVOMEPROMAZINA MALEATO (1839MA) [Concomitant]
     Indication: WITHDRAWAL SYNDROME
     Dosage: 25 MILLIGRAM DAILY;
     Route: 030
     Dates: start: 20181224, end: 20181228
  3. METADONA HIDROCLORURO (1922CH) [Interacting]
     Active Substance: METHADONE HYDROCHLORIDE
     Indication: WITHDRAWAL SYNDROME
     Dosage: 15 MILLIGRAM DAILY;
     Route: 048
     Dates: start: 20181225, end: 20181228
  4. TRAMADOL HIDROCLORURO (2389CH) [Concomitant]
     Active Substance: TRAMADOL
     Indication: WITHDRAWAL SYNDROME
     Route: 048
     Dates: start: 20181224, end: 20181224
  5. METADONA HIDROCLORURO (1922CH) [Concomitant]
     Indication: WITHDRAWAL SYNDROME
     Route: 048
     Dates: start: 20181224, end: 20181224
  6. TRAMADOL HIDROCLORURO (2389CH) [Suspect]
     Active Substance: TRAMADOL
     Indication: WITHDRAWAL SYNDROME
     Dosage: 50 MILLIGRAM DAILY;
     Route: 048
     Dates: start: 20181225, end: 20181228

REACTIONS (3)
  - Drug interaction [Unknown]
  - Respiratory depression [Recovered/Resolved]
  - Depressed level of consciousness [Recovered/Resolved]

NARRATIVE: CASE EVENT DATE: 20181228
